FAERS Safety Report 20581236 (Version 2)
Quarter: 2022Q2

REPORT INFORMATION
  Report Type: Spontaneous
  Country: US (occurrence: US)
  Receive Date: 20220311
  Receipt Date: 20220629
  Transmission Date: 20220721
  Serious: Yes (Hospitalization, Other)
  Sender: FDA-Public Use
  Company Number: US-SANOFI-01002138

PATIENT
  Age: 64 Year
  Sex: Male

DRUGS (9)
  1. LANTUS SOLOSTAR [Suspect]
     Active Substance: INSULIN GLARGINE
     Indication: Type 2 diabetes mellitus
     Dosage: 15 IU, QD
  2. ATORVASTATIN CALCIUM [Suspect]
     Active Substance: ATORVASTATIN CALCIUM
     Dosage: UNK
  3. CRESTOR [Concomitant]
     Active Substance: ROSUVASTATIN CALCIUM
     Indication: Blood cholesterol increased
  4. HYDROCODONE [Concomitant]
     Active Substance: HYDROCODONE
     Indication: Pain
  5. PLAVIX [Concomitant]
     Active Substance: CLOPIDOGREL BISULFATE
     Indication: Myocardial infarction
  6. JANUVIA [Concomitant]
     Active Substance: SITAGLIPTIN PHOSPHATE
     Indication: Type 2 diabetes mellitus
  7. NOVOLOG [Concomitant]
     Active Substance: INSULIN ASPART
     Indication: Type 2 diabetes mellitus
     Dosage: 5 IU, QD
  8. LISINOPRIL [Concomitant]
     Active Substance: LISINOPRIL
     Indication: Blood pressure increased
  9. VITAMINS NOS [Concomitant]
     Active Substance: VITAMINS
     Indication: Vitamin supplementation

REACTIONS (21)
  - Myocardial infarction [Not Recovered/Not Resolved]
  - Spinal fracture [Unknown]
  - Cerebral disorder [Unknown]
  - Fall [Unknown]
  - Joint injury [Unknown]
  - Limb injury [Unknown]
  - Rotator cuff syndrome [Unknown]
  - Limb discomfort [Unknown]
  - Corrective lens user [Unknown]
  - Renal disorder [Unknown]
  - Prostatic disorder [Unknown]
  - Ankle fracture [Unknown]
  - Condition aggravated [Unknown]
  - Gait disturbance [Unknown]
  - Hypoacusis [Unknown]
  - Tinnitus [Unknown]
  - Sleep disorder [Unknown]
  - Visual impairment [Unknown]
  - Product storage error [Unknown]
  - Intentional dose omission [Unknown]
  - Gastric stapling [Unknown]
